FAERS Safety Report 7142395-4 (Version None)
Quarter: 2010Q4

REPORT INFORMATION
  Report Type: 
  Country: None (occurrence: None)
  Receive Date: 20101207
  Receipt Date: 20101122
  Transmission Date: 20110411
  Serious: No
  Sender: FDA-Public Use
  Company Number: US-PFIZER INC-2010156074

PATIENT
  Sex: Male

DRUGS (7)
  1. HYDROXYZINE HCL [Suspect]
     Dosage: 10 MG, 3X/DAY
  2. HYDROXYZINE HCL [Suspect]
     Dosage: 10 MG, 1X/DAY
  3. GUAIFENESIN [Concomitant]
  4. ALBUTEROL [Suspect]
  5. SYMBICORT [Concomitant]
  6. PREDNISONE [Concomitant]
  7. CLARITIN [Concomitant]

REACTIONS (2)
  - ASTHENIA [None]
  - SOMNOLENCE [None]
